FAERS Safety Report 9794552 (Version 3)
Quarter: 2014Q1

REPORT INFORMATION
  Report Type: Spontaneous
  Country: US (occurrence: US)
  Receive Date: 20140102
  Receipt Date: 20140307
  Transmission Date: 20141002
  Serious: Yes (Hospitalization)
  Sender: FDA-Public Use
  Company Number: US-ASTRAZENECA-2013SE93911

PATIENT
  Age: 241 Day
  Sex: Male

DRUGS (7)
  1. SYNAGIS [Suspect]
     Indication: ANTIVIRAL PROPHYLAXIS
     Dosage: 50MG/ 0.5ML, 1.2 MG ONCE A MONTH
     Route: 030
     Dates: start: 20131108
  2. SYNAGIS [Suspect]
     Indication: ANTIVIRAL PROPHYLAXIS
     Route: 030
     Dates: start: 20131206
  3. TESTOSTERONE [Concomitant]
     Dosage: MONTHLY
  4. ALBUTEROL [Concomitant]
  5. XOPENEX [Concomitant]
     Dosage: PRN
  6. BACTRIM [Concomitant]
  7. PRILOSEC [Concomitant]

REACTIONS (2)
  - Bronchiolitis [Recovered/Resolved]
  - Rhinovirus infection [Unknown]
